FAERS Safety Report 9813769 (Version 1)
Quarter: 2014Q1

REPORT INFORMATION
  Report Type: Spontaneous
  Country: US (occurrence: None)
  Receive Date: 20140109
  Receipt Date: 20140109
  Transmission Date: 20141002
  Serious: No
  Sender: FDA-Public Use
  Company Number: None

PATIENT
  Age: 32 Year
  Sex: Male
  Weight: 83 kg

DRUGS (1)
  1. ERTAPENEM [Suspect]
     Indication: PNEUMONIA
     Route: 042
     Dates: start: 20131206, end: 20131207

REACTIONS (1)
  - Drug eruption [None]
